FAERS Safety Report 8379603-8 (Version None)
Quarter: 2012Q2

REPORT INFORMATION
  Report Type: 
  Country: None (occurrence: None)
  Receive Date: 20120523
  Receipt Date: 20120514
  Transmission Date: 20120825
  Serious: Yes (Hospitalization, Other)
  Sender: FDA-Public Use
  Company Number: GB-ABBOTT-12P-167-0935208-00

PATIENT
  Sex: Male
  Weight: 90 kg

DRUGS (6)
  1. OMEPRAZOLE [Concomitant]
     Indication: PRODUCT USED FOR UNKNOWN INDICATION
     Dates: start: 20110101
  2. CELECOXIB [Concomitant]
     Indication: PRODUCT USED FOR UNKNOWN INDICATION
     Dates: start: 20110101
  3. ESOMEPRAZOLE MAGNESIUM [Concomitant]
     Indication: PRODUCT USED FOR UNKNOWN INDICATION
     Dates: start: 20120503
  4. RAMIPRIL [Concomitant]
     Indication: PRODUCT USED FOR UNKNOWN INDICATION
     Dates: start: 20120503
  5. DOMPERIDONE [Concomitant]
     Indication: PRODUCT USED FOR UNKNOWN INDICATION
     Dates: start: 20120503
  6. HUMIRA [Suspect]
     Indication: PSORIASIS
     Route: 058
     Dates: start: 20090601

REACTIONS (31)
  - HIV INFECTION [None]
  - VASCULITIS [None]
  - PALPITATIONS [None]
  - BLOOD ZINC DECREASED [None]
  - BASAL CELL CARCINOMA [None]
  - NIGHT SWEATS [None]
  - FATIGUE [None]
  - DEPRESSED MOOD [None]
  - LYMPHOMA [None]
  - INCREASED UPPER AIRWAY SECRETION [None]
  - COUGH [None]
  - SINUSITIS [None]
  - WEIGHT DECREASED [None]
  - LYMPHADENOPATHY [None]
  - PNEUMONIA PRIMARY ATYPICAL [None]
  - LOSS OF CONSCIOUSNESS [None]
  - ACTINIC KERATOSIS [None]
  - MUSCULOSKELETAL DISCOMFORT [None]
  - CHILLS [None]
  - INFECTION PARASITIC [None]
  - DECREASED APPETITE [None]
  - UPPER-AIRWAY COUGH SYNDROME [None]
  - CHEST DISCOMFORT [None]
  - PSORIASIS [None]
  - HYPERHIDROSIS [None]
  - PHARYNGEAL INFLAMMATION [None]
  - REFLUX LARYNGITIS [None]
  - BODY MASS INDEX INCREASED [None]
  - HEART SOUNDS ABNORMAL [None]
  - VIRAL INFECTION [None]
  - NASAL INFLAMMATION [None]
